FAERS Safety Report 12470777 (Version 1)
Quarter: 2016Q2

REPORT INFORMATION
  Report Type: Spontaneous
  Country: FR (occurrence: FR)
  Receive Date: 20160616
  Receipt Date: 20160616
  Transmission Date: 20160815
  Serious: Yes (Hospitalization)
  Sender: FDA-Public Use
  Company Number: FR-ASTRAZENECA-2016SE64227

PATIENT
  Age: 31326 Day
  Sex: Female

DRUGS (8)
  1. SINTROM [Interacting]
     Active Substance: ACENOCOUMAROL
     Route: 048
     Dates: end: 20160428
  2. SERESTA [Concomitant]
     Active Substance: OXAZEPAM
  3. XELEVIA [Concomitant]
     Active Substance: SITAGLIPTIN PHOSPHATE
  4. DIIFU-K [Concomitant]
  5. CRESTOR [Suspect]
     Active Substance: ROSUVASTATIN CALCIUM
     Dosage: 5.0MG UNKNOWN
     Route: 048
  6. LODOZ [Concomitant]
     Active Substance: BISOPROLOL FUMARATE\HYDROCHLOROTHIAZIDE
  7. MIANSERINE [Concomitant]
     Active Substance: MIANSERIN HYDROCHLORIDE
  8. GLUCOPHAGE [Concomitant]
     Active Substance: METFORMIN HYDROCHLORIDE

REACTIONS (3)
  - Cerebral haemorrhage [Recovered/Resolved]
  - Drug interaction [Recovered/Resolved]
  - Face injury [Unknown]

NARRATIVE: CASE EVENT DATE: 20160428
